FAERS Safety Report 24160737 (Version 1)
Quarter: 2024Q3

REPORT INFORMATION
  Report Type: Spontaneous
  Country: ZA (occurrence: None)
  Receive Date: 20240801
  Receipt Date: 20240801
  Transmission Date: 20241016
  Serious: Yes (Hospitalization)
  Sender: ASTRAZENECA
  Company Number: 2024A169098

PATIENT
  Age: 51 Year
  Sex: Female

DRUGS (11)
  1. BUDESONIDE\FORMOTEROL [Suspect]
     Active Substance: BUDESONIDE\FORMOTEROL
     Indication: Asthma
     Dosage: 160/4.5 UG, UNKNOWN UNKNOWN
     Route: 055
  2. BUDESONIDE\FORMOTEROL [Suspect]
     Active Substance: BUDESONIDE\FORMOTEROL
     Indication: Chronic obstructive pulmonary disease
     Dosage: 160/4.5 UG, UNKNOWN UNKNOWN
     Route: 055
  3. ESOMEPRAZOLE [Concomitant]
     Active Substance: ESOMEPRAZOLE
     Indication: Gastrooesophageal reflux disease
     Dosage: 40.0MG UNKNOWN
     Route: 048
  4. ESOMEPRAZOLE [Concomitant]
     Active Substance: ESOMEPRAZOLE
     Indication: Gastric ulcer
     Dosage: 40.0MG UNKNOWN
     Route: 048
  5. ESOMEPRAZOLE [Concomitant]
     Active Substance: ESOMEPRAZOLE
     Indication: Gastrooesophageal reflux disease
     Dosage: 40.0MG UNKNOWN
     Route: 048
  6. ESOMEPRAZOLE [Concomitant]
     Active Substance: ESOMEPRAZOLE
     Indication: Helicobacter infection
     Dosage: 40.0MG UNKNOWN
     Route: 048
  7. ESOMEPRAZOLE [Concomitant]
     Active Substance: ESOMEPRAZOLE
     Indication: Gastrinoma
     Dosage: 40.0MG UNKNOWN
     Route: 048
  8. ESOMEPRAZOLE [Concomitant]
     Active Substance: ESOMEPRAZOLE
     Indication: Duodenal ulcer
     Dosage: 40.0MG UNKNOWN
     Route: 048
  9. BUDESONIDE [Concomitant]
     Active Substance: BUDESONIDE
     Indication: Rhinitis allergic
     Dosage: 0.5MG UNKNOWN
     Route: 048
  10. BUDESONIDE [Concomitant]
     Active Substance: BUDESONIDE
     Indication: Asthma
     Dosage: 0.5MG UNKNOWN
     Route: 048
  11. BUDESONIDE [Concomitant]
     Active Substance: BUDESONIDE
     Indication: Seasonal allergy
     Dosage: 0.5MG UNKNOWN
     Route: 048

REACTIONS (2)
  - Uterine leiomyoma [Unknown]
  - Respiratory disorder [Unknown]
